FAERS Safety Report 25882492 (Version 1)
Quarter: 2025Q4

REPORT INFORMATION
  Report Type: Spontaneous
  Country: SY (occurrence: SY)
  Receive Date: 20251006
  Receipt Date: 20251006
  Transmission Date: 20260118
  Serious: Yes (Other)
  Sender: EXELA PHARMA SCIENCES
  Company Number: SY-EXELAPHARMA-2025EXLA00197

PATIENT
  Age: 32 Year
  Sex: Male

DRUGS (2)
  1. VERAPAMIL HYDROCHLORIDE [Suspect]
     Active Substance: VERAPAMIL HYDROCHLORIDE
     Indication: Aortic valve stenosis
     Route: 022
  2. NITROGLYCERIN [Concomitant]
     Active Substance: NITROGLYCERIN
     Dosage: 200 MCG TOTAL, 100 MCG PER ARTERY
     Route: 022

REACTIONS (2)
  - Drug ineffective for unapproved indication [Unknown]
  - Panic attack [Recovered/Resolved]
